FAERS Safety Report 14706283 (Version 3)
Quarter: 2018Q2

REPORT INFORMATION
  Report Type: Report from Study
  Country: US (occurrence: US)
  Receive Date: 20180402
  Receipt Date: 20180530
  Transmission Date: 20180711
  Serious: Yes (Hospitalization, Other)
  Sender: FDA-Public Use
  Company Number: PHHO2018US003734

PATIENT
  Age: 69 Year
  Sex: Male
  Weight: 87.26 kg

DRUGS (21)
  1. ENTRESTO [Suspect]
     Active Substance: SACUBITRIL\VALSARTAN
     Dosage: 49/51 MG
     Route: 048
     Dates: start: 20171005, end: 20171023
  2. TYLENOL EXTRA [Concomitant]
     Indication: PAIN
     Dosage: PRN
     Route: 065
     Dates: start: 201704, end: 2018
  3. AVASTIN [Concomitant]
     Active Substance: BEVACIZUMAB
     Indication: RETINOPATHY PROLIFERATIVE
     Dosage: EVERY 4-6 WEEKS
     Route: 031
     Dates: start: 20170825
  4. ENTRESTO [Suspect]
     Active Substance: SACUBITRIL\VALSARTAN
     Indication: CARDIAC FAILURE
     Dosage: 24/26 MG
     Route: 048
     Dates: start: 20170922, end: 20171005
  5. ATORVASTATIN CALCIUM. [Concomitant]
     Active Substance: ATORVASTATIN CALCIUM
     Indication: RETINOPATHY PROLIFERATIVE
     Dosage: 1.25 MG/OS MG (EVERY 4 TO 6 WEEK)
     Route: 031
     Dates: start: 20170825, end: 20180307
  6. FOLIC ACID. [Concomitant]
     Active Substance: FOLIC ACID
     Indication: SUPPLEMENTATION THERAPY
     Dosage: 1 MG, QD
     Route: 048
     Dates: start: 20170714
  7. FUROSEMIDE. [Concomitant]
     Active Substance: FUROSEMIDE
     Dosage: 80 MG, BID
     Route: 048
     Dates: start: 20171006, end: 20180307
  8. ARTIFICIAL TEARS [Concomitant]
     Active Substance: GLYCERIN\HYPROMELLOSES\POLYETHYLENE GLYCOL 400
     Indication: DRY EYE
     Dosage: 1-4% ARTIFICIAL PRN
     Route: 065
     Dates: start: 20170829
  9. ASPIRIN. [Concomitant]
     Active Substance: ASPIRIN
     Indication: PROPHYLAXIS
     Dosage: 81 MG, QD
     Route: 048
     Dates: start: 20170428, end: 20180307
  10. ENTRESTO [Suspect]
     Active Substance: SACUBITRIL\VALSARTAN
     Dosage: 97/103 MG
     Route: 048
     Dates: start: 20171023, end: 20180307
  11. ATORVASTATIN CALCIUM. [Concomitant]
     Active Substance: ATORVASTATIN CALCIUM
     Indication: HYPERCHOLESTEROLAEMIA
     Dosage: 48 MG, QD
     Route: 048
     Dates: start: 201701, end: 20180307
  12. METFORMIN HCL [Concomitant]
     Active Substance: METFORMIN HYDROCHLORIDE
     Indication: HYPERTENSION
     Dosage: 500 MG, QD
     Route: 048
     Dates: start: 20171023
  13. ENTRESTO [Suspect]
     Active Substance: SACUBITRIL\VALSARTAN
     Dosage: 49/51 MG
     Route: 048
     Dates: start: 20180316, end: 20180406
  14. AVASTIN [Concomitant]
     Active Substance: BEVACIZUMAB
     Indication: MACULAR OEDEMA
  15. TAMSULOSIN HCL [Concomitant]
     Active Substance: TAMSULOSIN HYDROCHLORIDE
     Indication: HYPERTENSION
     Dosage: 500 MG, QD
     Route: 048
     Dates: start: 20170714
  16. LEVOTHYROXINE SODIUM. [Concomitant]
     Active Substance: LEVOTHYROXINE SODIUM
     Indication: HYPOTHYROIDISM
     Dosage: 50 UG, QD
     Route: 048
     Dates: start: 2017
  17. CARVEDILOL. [Suspect]
     Active Substance: CARVEDILOL
     Indication: HYPERTENSION
     Dosage: 25 MG, BID
     Route: 048
     Dates: start: 20170428
  18. FUROSEMIDE. [Concomitant]
     Active Substance: FUROSEMIDE
     Indication: DIURETIC THERAPY
     Dosage: 40 MG, BID
     Route: 048
     Dates: start: 20170428
  19. VITAMIN B12 [Concomitant]
     Active Substance: CYANOCOBALAMIN
     Indication: VITAMIN SUPPLEMENTATION
     Dosage: 1000 UG, QD
     Route: 048
     Dates: start: 201704, end: 20180307
  20. TAMSULOSIN HCL [Concomitant]
     Active Substance: TAMSULOSIN HYDROCHLORIDE
     Indication: MUSCLE RELAXANT THERAPY
     Dosage: 0.4 MG, QD
     Route: 048
     Dates: start: 20170714
  21. VITAMIN B1 [Concomitant]
     Active Substance: THIAMINE HYDROCHLORIDE
     Indication: VITAMIN SUPPLEMENTATION
     Dosage: 100 MG, QD
     Route: 048
     Dates: start: 201704

REACTIONS (10)
  - Chronic kidney disease [Recovering/Resolving]
  - Bradycardia [Recovered/Resolved]
  - Hyponatraemia [Recovered/Resolved]
  - Urinary tract infection [Recovering/Resolving]
  - Cardiac failure acute [Recovered/Resolved]
  - Fatigue [Recovered/Resolved]
  - Dizziness [Recovered/Resolved]
  - Bradycardia [Recovered/Resolved]
  - Hypotension [Recovering/Resolving]
  - Chronic disease [Recovering/Resolving]

NARRATIVE: CASE EVENT DATE: 20180302
